FAERS Safety Report 15221716 (Version 1)
Quarter: 2018Q3

REPORT INFORMATION
  Report Type: Spontaneous
  Country: FR (occurrence: FR)
  Receive Date: 20180731
  Receipt Date: 20180731
  Transmission Date: 20181010
  Serious: Yes (Other)
  Sender: FDA-Public Use
  Company Number: FR-BRAEBURN PHARMACEUTICALS, INC.-2018BBN00070

PATIENT
  Age: 33 Year
  Sex: Male

DRUGS (1)
  1. BUPRENORPHINE. [Suspect]
     Active Substance: BUPRENORPHINE
     Route: 042

REACTIONS (2)
  - Intentional product misuse [Recovered/Resolved]
  - Embolia cutis medicamentosa [Recovered/Resolved]
